FAERS Safety Report 26111256 (Version 1)
Quarter: 2025Q4

REPORT INFORMATION
  Report Type: Spontaneous
  Country: KR (occurrence: KR)
  Receive Date: 20251202
  Receipt Date: 20251202
  Transmission Date: 20260118
  Serious: Yes (Other)
  Sender: ALEXION PHARMACEUTICALS
  Company Number: KR-ASTRAZENECA-202511ASI026414KR

PATIENT
  Sex: Female

DRUGS (15)
  1. TAGRISSO [Suspect]
     Active Substance: OSIMERTINIB
     Dosage: 1-1 OSIMERTINIB/PEMETREXED/CISPLATIN 100%
     Route: 065
  2. TAGRISSO [Suspect]
     Active Substance: OSIMERTINIB
     Dosage: 1-2 OSIMERTINIB/PEMETREXED/CISPLATIN 80%
     Route: 065
  3. TAGRISSO [Suspect]
     Active Substance: OSIMERTINIB
     Dosage: 1-3 OSIMERTINIB/PEMETREXED/CISPLATIN 70%
     Route: 065
  4. TAGRISSO [Suspect]
     Active Substance: OSIMERTINIB
     Dosage: 1-4 OSIMERTINIB/PEMETREXED/CISPLATIN 70%
     Route: 065
  5. TAGRISSO [Suspect]
     Active Substance: OSIMERTINIB
     Dosage: 1-5 ~ 1-9 OSIMERTINIB/PEMETREXED 70%
     Route: 065
  6. PEMETREXED [Suspect]
     Active Substance: PEMETREXED
     Dosage: 1-1 OSIMERTINIB/PEMETREXED/CISPLATIN 100%
     Route: 065
  7. PEMETREXED [Suspect]
     Active Substance: PEMETREXED
     Dosage: 1-2 OSIMERTINIB/PEMETREXED/CISPLATIN 80%
     Route: 065
  8. PEMETREXED [Suspect]
     Active Substance: PEMETREXED
     Dosage: 1-3 OSIMERTINIB/PEMETREXED/CISPLATIN 70%
     Route: 065
  9. PEMETREXED [Suspect]
     Active Substance: PEMETREXED
     Dosage: 1-4 OSIMERTINIB/PEMETREXED/CISPLATIN 70%
     Route: 065
  10. PEMETREXED [Suspect]
     Active Substance: PEMETREXED
     Dosage: 1-5 ~ 1-9 OSIMERTINIB/PEMETREXED 70%
     Route: 065
  11. CISPLATIN [Suspect]
     Active Substance: CISPLATIN
     Dosage: 1-1 OSIMERTINIB/PEMETREXED/CISPLATIN 100%
     Route: 065
  12. CISPLATIN [Suspect]
     Active Substance: CISPLATIN
     Dosage: 1-2 OSIMERTINIB/PEMETREXED/CISPLATIN 80%
     Route: 065
  13. CISPLATIN [Suspect]
     Active Substance: CISPLATIN
     Dosage: 1-3 OSIMERTINIB/PEMETREXED/CISPLATIN 70%
     Route: 065
  14. CISPLATIN [Suspect]
     Active Substance: CISPLATIN
     Dosage: 1-4 OSIMERTINIB/PEMETREXED/CISPLATIN 70%
     Route: 065
  15. XGEVA [Suspect]
     Active Substance: DENOSUMAB
     Dosage: UNK, Q4W
     Route: 065
     Dates: start: 202411

REACTIONS (2)
  - Cytopenia [Unknown]
  - Fatigue [Unknown]
